FAERS Safety Report 6809304-6 (Version None)
Quarter: 2010Q2

REPORT INFORMATION
  Report Type: 
  Country: None (occurrence: None)
  Receive Date: 20100630
  Receipt Date: 20100616
  Transmission Date: 20101027
  Serious: Yes (Other)
  Sender: FDA-Public Use
  Company Number: JP-RANBAXY-2010RR-35188

PATIENT
  Age: 32 Year
  Sex: Female

DRUGS (10)
  1. ACETAMINOPHEN [Suspect]
     Dosage: 900 MG, UNK
  2. DIHYDROCODEINE BITARTRATE INJ [Suspect]
     Dosage: 24 MG, UNK
  3. CLEMASTINE FUMARATE [Suspect]
     Dosage: 1.34 MG, UNK
  4. LYSOZYME CHLORIDE [Suspect]
     Dosage: 90 MG, UNK
  5. ATROPA BELLADONNA [Suspect]
     Dosage: 0.3 MG, UNK
  6. NOSCAPINE [Suspect]
     Dosage: 48 MG, UNK
  7. METHYLEPHEDRINE HYDROCHLORIDE [Suspect]
     Dosage: 60 MG, UNK
  8. CAFFEINE [Suspect]
     Dosage: 75 MG, UNK
  9. BENFOTIAMINE [Suspect]
     Dosage: 24 MG, UNK
  10. GUTTA PERCHA/ GINSENG [Suspect]
     Dosage: UNK

REACTIONS (4)
  - ATAXIA [None]
  - DYSARTHRIA [None]
  - ISCHAEMIC STROKE [None]
  - SACCADIC EYE MOVEMENT [None]
